FAERS Safety Report 5247038-2 (Version None)
Quarter: 2007Q1

REPORT INFORMATION
  Report Type: 
  Country: None (occurrence: None)
  Receive Date: 20070226
  Receipt Date: 20070222
  Transmission Date: 20070707
  Serious: Yes (Hospitalization)
  Sender: FDA-Public Use
  Company Number: DE-GLAXOSMITHKLINE-D0052397A

PATIENT
  Sex: Male

DRUGS (1)
  1. VIANI [Suspect]
     Route: 055

REACTIONS (2)
  - HEPATIC CIRRHOSIS [None]
  - HEPATIC HAEMORRHAGE [None]
